FAERS Safety Report 8451687-8 (Version None)
Quarter: 2012Q2

REPORT INFORMATION
  Report Type: 
  Country: None (occurrence: None)
  Receive Date: 20120620
  Receipt Date: 20120307
  Transmission Date: 20120825
  Serious: No
  Sender: FDA-Public Use
  Company Number: US-VERTEX PHARMACEUTICALS INC.-AE-2012-003633

PATIENT
  Sex: Female
  Weight: 81.72 kg

DRUGS (8)
  1. ATIVAN [Concomitant]
     Indication: ANXIETY
     Route: 048
  2. LISINOPRIL [Concomitant]
     Indication: HYPERTENSION
     Route: 048
  3. MULTI-VITAMIN [Concomitant]
     Route: 048
  4. RIBAVIRIN [Concomitant]
     Indication: HEPATITIS C
     Route: 048
     Dates: start: 20111111, end: 20120112
  5. INCIVEK [Suspect]
     Indication: HEPATITIS C
     Route: 048
     Dates: start: 20111111, end: 20120112
  6. HYDROCHLOROTHIAZIDE [Concomitant]
     Indication: HYPERTENSION
     Route: 048
  7. GLUCOSAMINE [Concomitant]
     Route: 048
  8. PEGASYS [Concomitant]
     Indication: HEPATITIS C
     Route: 058
     Dates: start: 20111111, end: 20120112

REACTIONS (6)
  - FATIGUE [None]
  - VOMITING [None]
  - NAUSEA [None]
  - ALOPECIA [None]
  - DRUG INEFFECTIVE [None]
  - DIARRHOEA [None]
